FAERS Safety Report 5404407-5 (Version None)
Quarter: 2007Q3

REPORT INFORMATION
  Report Type: 
  Country: None (occurrence: None)
  Receive Date: 20070802
  Receipt Date: 20070723
  Transmission Date: 20080115
  Serious: Yes (Other)
  Sender: FDA-Public Use
  Company Number: AU-PFIZER INC-2007061070

PATIENT
  Sex: Female

DRUGS (6)
  1. NORVASC [Suspect]
  2. LIPITOR [Concomitant]
  3. IRBESARTAN AND HYDROCHLOROTHIAZIDE [Concomitant]
  4. WARFARIN SODIUM [Concomitant]
  5. CORDARONE [Concomitant]
  6. CENTRUM [Concomitant]

REACTIONS (6)
  - ASTHENIA [None]
  - DEPRESSION [None]
  - INSOMNIA [None]
  - OEDEMA PERIPHERAL [None]
  - ROAD TRAFFIC ACCIDENT [None]
  - VISUAL DISTURBANCE [None]
